FAERS Safety Report 24616975 (Version 2)
Quarter: 2024Q4

REPORT INFORMATION
  Report Type: Report from Study
  Country: MX (occurrence: MX)
  Receive Date: 20241114
  Receipt Date: 20241115
  Transmission Date: 20250115
  Serious: Yes (Other)
  Sender: BIOVITRUM
  Company Number: MX-AstraZeneca-2024A186443

PATIENT
  Age: 355 Day
  Sex: Male
  Weight: 7.4 kg

DRUGS (6)
  1. PALIVIZUMAB [Suspect]
     Active Substance: PALIVIZUMAB
     Indication: Antiviral prophylaxis
     Dosage: 1ST DOSE?MONTHLY
     Route: 030
  2. PALIVIZUMAB [Suspect]
     Active Substance: PALIVIZUMAB
     Dosage: 2ND DOSE?MONTHLY
     Route: 030
     Dates: start: 20240909, end: 20240909
  3. PALIVIZUMAB [Suspect]
     Active Substance: PALIVIZUMAB
     Dosage: 3RD DOSE?MONTHLY
     Route: 030
     Dates: start: 20241014, end: 20241014
  4. CEFIXIM [Concomitant]
     Active Substance: CEFIXIME
     Indication: Cough
     Dosage: 4 MILLILITER, QD
  5. CEFIXIM [Concomitant]
     Active Substance: CEFIXIME
     Indication: Influenza
  6. CEFIXIM [Concomitant]
     Active Substance: CEFIXIME
     Indication: Pharyngitis

REACTIONS (12)
  - Productive cough [Recovered/Resolved]
  - Breath sounds abnormal [Not Recovered/Not Resolved]
  - Incorrect dose administered [Recovered/Resolved]
  - Influenza [Recovered/Resolved]
  - Dyspnoea [Recovered/Resolved]
  - Influenza [Recovered/Resolved]
  - Rhinorrhoea [Recovered/Resolved]
  - Cough [Recovered/Resolved]
  - Cough [Not Recovered/Not Resolved]
  - Pharyngitis [Not Recovered/Not Resolved]
  - Influenza [Not Recovered/Not Resolved]
  - Adverse event [Not Recovered/Not Resolved]

NARRATIVE: CASE EVENT DATE: 20240801
